FAERS Safety Report 8718436 (Version 3)
Quarter: 2013Q3

REPORT INFORMATION
  Report Type: Report from Study
  Country: US (occurrence: US)
  Receive Date: 20120810
  Receipt Date: 20130923
  Transmission Date: 20140515
  Serious: Yes (Hospitalization)
  Sender: FDA-Public Use
  Company Number: US-009507513-1208USA003499

PATIENT
  Age: 70 Year
  Sex: Female
  Weight: 74.9 kg

DRUGS (2)
  1. VORINOSTAT [Suspect]
     Indication: GLIOBLASTOMA MULTIFORME
     Dosage: 300 MG, ON DAYS 1-5 WEEKLY
     Route: 048
     Dates: start: 20120716, end: 20120802
  2. TEMOZOLOMIDE [Suspect]
     Indication: GLIOBLASTOMA MULTIFORME
     Dosage: 75 MG/M2, QD
     Route: 048
     Dates: start: 20120716, end: 20120802

REACTIONS (1)
  - Embolism [Recovered/Resolved]
